FAERS Safety Report 20558252 (Version 2)
Quarter: 2022Q4

REPORT INFORMATION
  Report Type: Report from Study
  Country: JP (occurrence: JP)
  Receive Date: 20220307
  Receipt Date: 20221201
  Transmission Date: 20230113
  Serious: Yes (Life-Threatening, Hospitalization, Disabling, Other)
  Sender: FDA-Public Use
  Company Number: JP-SAKK-2022SA066288AA

PATIENT
  Age: 17 Year
  Sex: Male
  Weight: 30 kg

DRUGS (17)
  1. AVALGLUCOSIDASE ALFA [Suspect]
     Active Substance: AVALGLUCOSIDASE ALFA
     Indication: Glycogen storage disease type II
     Dosage: 1200 MG, QOW
     Route: 041
     Dates: start: 20220124, end: 20220221
  2. AVALGLUCOSIDASE ALFA [Suspect]
     Active Substance: AVALGLUCOSIDASE ALFA
     Dosage: TOTAL DOSE (MG): 1200, TOTAL DOSE VOLUME (ML): 300
     Route: 041
     Dates: start: 20220105, end: 20220105
  3. AVALGLUCOSIDASE ALFA [Suspect]
     Active Substance: AVALGLUCOSIDASE ALFA
     Dosage: TOTAL DOSE (MG): 1200, TOTAL DOSE VOLUME (ML): 300
     Route: 041
     Dates: start: 20220314, end: 20220314
  4. AVALGLUCOSIDASE ALFA [Suspect]
     Active Substance: AVALGLUCOSIDASE ALFA
     Dosage: TOTAL DOSE (MG): 1200, TOTAL DOSE VOLUME (ML): 300
     Route: 041
     Dates: start: 20220411, end: 20220411
  5. AVALGLUCOSIDASE ALFA [Suspect]
     Active Substance: AVALGLUCOSIDASE ALFA
     Dosage: TOTAL DOSE (MG): 1200, TOTAL DOSE VOLUME (ML): 300
     Route: 041
     Dates: start: 20220426, end: 20220426
  6. AVALGLUCOSIDASE ALFA [Suspect]
     Active Substance: AVALGLUCOSIDASE ALFA
     Dosage: TOTAL DOSE (MG): 1200, TOTAL DOSE VOLUME (ML): 300
     Route: 041
     Dates: start: 20220511, end: 20220511
  7. AVALGLUCOSIDASE ALFA [Suspect]
     Active Substance: AVALGLUCOSIDASE ALFA
     Dosage: 1200 MG, QOW
     Route: 041
     Dates: start: 20220530, end: 20220711
  8. AVALGLUCOSIDASE ALFA [Suspect]
     Active Substance: AVALGLUCOSIDASE ALFA
     Dosage: TOTAL DOSE (MG): 1200, TOTAL DOSE VOLUME (ML): 300
     Route: 041
     Dates: start: 20220726, end: 20220726
  9. AVALGLUCOSIDASE ALFA [Suspect]
     Active Substance: AVALGLUCOSIDASE ALFA
     Dosage: 1200 MG, QOW
     Route: 041
     Dates: start: 20220815, end: 20220926
  10. AVALGLUCOSIDASE ALFA [Suspect]
     Active Substance: AVALGLUCOSIDASE ALFA
     Dosage: TOTAL DOSE (MG): 1200, TOTAL DOSE VOLUME (ML): 300
     Route: 041
     Dates: start: 20221011, end: 20221011
  11. AVALGLUCOSIDASE ALFA [Suspect]
     Active Substance: AVALGLUCOSIDASE ALFA
     Dosage: 1200 MG, QOW
     Route: 041
     Dates: start: 20221031, end: 20221128
  12. MESALAMINE [Concomitant]
     Active Substance: MESALAMINE
     Indication: Colitis ulcerative
     Dosage: UNK
     Route: 065
  13. CARVEDILOL [Concomitant]
     Active Substance: CARVEDILOL
     Indication: Glycogen storage disease type II
     Dosage: 3.5 MG, QD
     Route: 065
  14. ENALAPRIL MALEATE [Concomitant]
     Active Substance: ENALAPRIL MALEATE
     Indication: Glycogen storage disease type II
     Dosage: 4 MG, QD
     Route: 065
  15. ASPIRIN [Concomitant]
     Active Substance: ASPIRIN
     Indication: Glycogen storage disease type II
     Dosage: 0.08 G, QD
     Route: 065
  16. FUROSEMIDE [Concomitant]
     Active Substance: FUROSEMIDE
     Indication: Glycogen storage disease type II
     Dosage: 10 MG, QD
     Route: 065
  17. SPIRONOLACTONE [Concomitant]
     Active Substance: SPIRONOLACTONE
     Indication: Glycogen storage disease type II
     Dosage: 15 MG, QD
     Route: 065

REACTIONS (1)
  - Atrioventricular block complete [Not Recovered/Not Resolved]

NARRATIVE: CASE EVENT DATE: 20220226
